FAERS Safety Report 23242541 (Version 1)
Quarter: 2023Q4

REPORT INFORMATION
  Report Type: Spontaneous
  Country: CA (occurrence: CA)
  Receive Date: 20231129
  Receipt Date: 20231129
  Transmission Date: 20240110
  Serious: Yes (Hospitalization)
  Sender: FDA-Public Use
  Company Number: CA-SANDOZ-SDZ2023CA060783

PATIENT
  Age: 63 Year
  Sex: Female

DRUGS (2)
  1. IXEKIZUMAB [Suspect]
     Active Substance: IXEKIZUMAB
     Indication: Psoriasis
     Dosage: 80 MG
     Route: 058
  2. ROSUVASTATIN CALCIUM [Suspect]
     Active Substance: ROSUVASTATIN CALCIUM
     Indication: Hypercholesterolaemia
     Dosage: 20 MG
     Route: 065

REACTIONS (9)
  - Bladder cancer [Unknown]
  - Blood glucose increased [Unknown]
  - Cystitis [Unknown]
  - Furuncle [Unknown]
  - Haemorrhage [Unknown]
  - Peripheral swelling [Unknown]
  - Diabetes mellitus [Unknown]
  - Injection site pain [Unknown]
  - Nausea [Unknown]
